FAERS Safety Report 11142130 (Version 1)
Quarter: 2015Q2

REPORT INFORMATION
  Report Type: Spontaneous
  Country: US (occurrence: US)
  Receive Date: 20150527
  Receipt Date: 20150527
  Transmission Date: 20150821
  Serious: No
  Sender: FDA-Public Use
  Company Number: US-MALLINCKRODT-QSC-2014-0507

PATIENT
  Age: 65 Year
  Sex: Female
  Weight: 47.62 kg

DRUGS (1)
  1. H.P. ACTHAR [Suspect]
     Active Substance: CORTICOTROPIN
     Indication: MULTIPLE SCLEROSIS
     Dosage: 80 UNITS, QD
     Route: 030
     Dates: start: 20140725, end: 20140728

REACTIONS (13)
  - Nausea [Not Recovered/Not Resolved]
  - Asthenia [Unknown]
  - Drug ineffective [Unknown]
  - Pyrexia [Not Recovered/Not Resolved]
  - Muscle twitching [Not Recovered/Not Resolved]
  - Blepharospasm [Not Recovered/Not Resolved]
  - Tremor [Not Recovered/Not Resolved]
  - Fatigue [Not Recovered/Not Resolved]
  - Palpitations [Not Recovered/Not Resolved]
  - Dyspepsia [Not Recovered/Not Resolved]
  - Dyspnoea [Not Recovered/Not Resolved]
  - Eye swelling [Not Recovered/Not Resolved]
  - Insomnia [Not Recovered/Not Resolved]

NARRATIVE: CASE EVENT DATE: 201407
